FAERS Safety Report 10871126 (Version 1)
Quarter: 2015Q1

REPORT INFORMATION
  Report Type: Spontaneous
  Country: US (occurrence: US)
  Receive Date: 20150226
  Receipt Date: 20150226
  Transmission Date: 20150721
  Serious: Yes (Death)
  Sender: FDA-Public Use
  Company Number: US-BANPHARM-20153492

PATIENT
  Age: 41 Year
  Sex: Male

DRUGS (5)
  1. ACETAMINOPHEN. [Suspect]
     Active Substance: ACETAMINOPHEN
  2. FENTANYL (TRANSDERMAL) [Suspect]
     Active Substance: FENTANYL
     Route: 062
  3. DIPHENHYDRAMINE UNKNOWN PRODUCT [Suspect]
     Active Substance: DIPHENHYDRAMINE
  4. CARBON MONOXIDE [Suspect]
     Active Substance: CARBON MONOXIDE
  5. OXYCODONE [Suspect]
     Active Substance: OXYCODONE

REACTIONS (1)
  - Death [Fatal]
